FAERS Safety Report 9223032 (Version 1)
Quarter: 2013Q2

REPORT INFORMATION
  Report Type: Spontaneous
  Country: US (occurrence: US)
  Receive Date: 20130410
  Receipt Date: 20130410
  Transmission Date: 20140414
  Serious: Yes (Life-Threatening, Other)
  Sender: FDA-Public Use
  Company Number: US-ROCHE-1212066

PATIENT
  Age: 49 Year
  Sex: Female
  Weight: 63 kg

DRUGS (5)
  1. NEUPOGEN [Suspect]
     Indication: HEPATITIS C
     Route: 065
  2. PEGASYS [Suspect]
     Indication: HEPATITIS C
     Route: 065
     Dates: start: 20121123, end: 20130207
  3. RIBAVIRIN [Suspect]
     Indication: HEPATITIS C
     Dosage: 1000 MG, 600 MG AM, 400 MG PM
     Route: 065
     Dates: start: 20121123, end: 20130207
  4. INCIVEK [Suspect]
     Indication: HEPATITIS C
     Route: 048
     Dates: start: 20121123, end: 20130207
  5. PROCRIT [Suspect]
     Indication: ANAEMIA
     Route: 065

REACTIONS (3)
  - Apparent death [Unknown]
  - Fluid retention [Recovered/Resolved]
  - Weight increased [Recovering/Resolving]
